FAERS Safety Report 21313820 (Version 1)
Quarter: 2022Q3

REPORT INFORMATION
  Report Type: Spontaneous
  Country: CA (occurrence: None)
  Receive Date: 20220909
  Receipt Date: 20220909
  Transmission Date: 20221026
  Serious: Yes (Other)
  Sender: FDA-Public Use
  Company Number: CA-ROCHE-3174820

PATIENT
  Age: 28 Year
  Sex: Female

DRUGS (5)
  1. OCRELIZUMAB [Suspect]
     Active Substance: OCRELIZUMAB
     Indication: Product used for unknown indication
     Route: 065
  2. GILENYA [Suspect]
     Active Substance: FINGOLIMOD HYDROCHLORIDE
     Indication: Product used for unknown indication
     Route: 065
  3. GILENYA [Suspect]
     Active Substance: FINGOLIMOD HYDROCHLORIDE
     Route: 065
  4. DESOGESTREL [Concomitant]
     Active Substance: DESOGESTREL
     Indication: Product used for unknown indication
     Route: 065
  5. OMEPRAZOLE [Concomitant]
     Active Substance: OMEPRAZOLE
     Indication: Product used for unknown indication
     Route: 065

REACTIONS (12)
  - Anxiety [Unknown]
  - Balance disorder [Unknown]
  - Central nervous system lesion [Unknown]
  - Chest pain [Unknown]
  - Costochondritis [Unknown]
  - Depression [Unknown]
  - Fatigue [Unknown]
  - Gait disturbance [Unknown]
  - Hyperintensity in brain deep nuclei [Unknown]
  - Migraine [Unknown]
  - Optic neuritis [Unknown]
  - Tachyarrhythmia [Unknown]
